FAERS Safety Report 9359261 (Version 1)
Quarter: 2013Q2

REPORT INFORMATION
  Report Type: Spontaneous
  Country: US (occurrence: US)
  Receive Date: 20130620
  Receipt Date: 20130620
  Transmission Date: 20140414
  Serious: No
  Sender: FDA-Public Use
  Company Number: US-US-EMD SERONO, INC.-7163554

PATIENT
  Sex: Female

DRUGS (2)
  1. REBIF [Suspect]
     Indication: PRODUCT USED FOR UNKNOWN INDICATION
     Route: 058
     Dates: start: 201102
  2. IBUPROFEN [Suspect]
     Indication: INFLUENZA LIKE ILLNESS

REACTIONS (2)
  - Abdominal discomfort [Unknown]
  - Influenza like illness [Unknown]
